FAERS Safety Report 6652199-4 (Version None)
Quarter: 2010Q1

REPORT INFORMATION
  Report Type: 
  Country: None (occurrence: None)
  Receive Date: 20100325
  Receipt Date: 20100319
  Transmission Date: 20100710
  Serious: Yes (Death, Other)
  Sender: FDA-Public Use
  Company Number: US-ELI_LILLY_AND_COMPANY-US200912002274

PATIENT
  Sex: Male
  Weight: 76.1 kg

DRUGS (5)
  1. ALIMTA [Suspect]
     Indication: NON-SMALL CELL LUNG CANCER METASTATIC
     Dosage: 1000 MG, EVERY THREE WEEKS
     Route: 042
     Dates: start: 20090409, end: 20090521
  2. AVASTIN [Concomitant]
     Indication: NON-SMALL CELL LUNG CANCER METASTATIC
     Dosage: 1200 MG, EVERY THREE WEEKS
     Route: 042
     Dates: end: 20090521
  3. DEXAMETHASONE [Concomitant]
     Dosage: 10 MG, UNK
     Dates: start: 20090409, end: 20090521
  4. VITAMIN B-12 [Concomitant]
  5. FOLIC ACID [Concomitant]
     Route: 048

REACTIONS (7)
  - ATELECTASIS [None]
  - BLOOD ALKALINE PHOSPHATASE INCREASED [None]
  - BLOOD GLUCOSE INCREASED [None]
  - BLOOD SODIUM INCREASED [None]
  - MALIGNANT NEOPLASM PROGRESSION [None]
  - PLEURAL EFFUSION [None]
  - RENAL CYST [None]
